FAERS Safety Report 8607000 (Version 2)
Quarter: 2013Q3

REPORT INFORMATION
  Report Type: Spontaneous
  Country: US (occurrence: US)
  Receive Date: 20120611
  Receipt Date: 20130807
  Transmission Date: 20140515
  Serious: Yes (Hospitalization)
  Sender: FDA-Public Use
  Company Number: US-ASTRAZENECA-2012SE15981

PATIENT
  Age: 39 Year
  Sex: Male
  Weight: 97.5 kg

DRUGS (19)
  1. NEXIUM [Suspect]
     Indication: GASTROOESOPHAGEAL REFLUX DISEASE
     Dosage: ONCE, SOME TIME ON AN OCCASION TOOK TWO
     Route: 048
     Dates: start: 1995
  2. NEXIUM [Suspect]
     Indication: GASTROOESOPHAGEAL REFLUX DISEASE
     Route: 048
  3. NEXIUM [Suspect]
     Indication: GASTROOESOPHAGEAL REFLUX DISEASE
     Route: 048
  4. PRILOSEC [Suspect]
     Route: 048
  5. PROTONIX [Concomitant]
  6. PREVACID [Concomitant]
  7. TAGAMENT [Concomitant]
  8. PEPCID [Concomitant]
  9. ZANTAC [Concomitant]
  10. ASPIRIN [Concomitant]
     Route: 048
  11. CADUET [Concomitant]
     Dosage: 10-40 MG TAB 1 BY MOUTH DAILY
     Route: 048
  12. EDARBYCLOR [Concomitant]
     Dosage: 10-40 MG TAB 1 BY MOUTH DAILY
     Route: 048
  13. EFFIENT [Concomitant]
     Route: 048
  14. FENOFIBRATE [Concomitant]
     Route: 048
  15. FOLIC ACID [Concomitant]
     Route: 048
  16. FUROSEMIDE [Concomitant]
     Route: 048
  17. KLOR CON M20 [Concomitant]
     Route: 048
  18. ER PARTICLES/CRYSTALS [Concomitant]
     Dosage: AS NEEDED WITH LASIX
  19. TOPROL XL [Concomitant]
     Route: 048

REACTIONS (19)
  - Convulsion [Unknown]
  - Myocardial infarction [Unknown]
  - Prostatic disorder [Unknown]
  - Eye disorder [Unknown]
  - Osteoporosis [Unknown]
  - Gastrooesophageal reflux disease [Unknown]
  - Multiple fractures [Unknown]
  - Carpal tunnel syndrome [Unknown]
  - Trigger finger [Unknown]
  - Back injury [Unknown]
  - Limb injury [Unknown]
  - Limb injury [Unknown]
  - Musculoskeletal pain [Unknown]
  - Rotator cuff syndrome [Unknown]
  - Diabetes mellitus [Unknown]
  - Polyp [Unknown]
  - Angina pectoris [Unknown]
  - Vitamin D deficiency [Unknown]
  - Extra dose administered [Unknown]
